FAERS Safety Report 13351137 (Version 1)
Quarter: 2017Q1

REPORT INFORMATION
  Report Type: Spontaneous
  Country: DE (occurrence: DE)
  Receive Date: 20170320
  Receipt Date: 20170320
  Transmission Date: 20170429
  Serious: Yes (Hospitalization)
  Sender: FDA-Public Use
  Company Number: DE-ELI_LILLY_AND_COMPANY-DE201703005464

PATIENT
  Age: 84 Year
  Sex: Female

DRUGS (3)
  1. HUMULIN N [Suspect]
     Active Substance: INSULIN HUMAN
     Indication: DIABETES MELLITUS
     Dosage: UNK, BID
     Route: 058
  2. ENAHEXAL                           /00574902/ [Concomitant]
     Active Substance: ENALAPRIL MALEATE
  3. INSULIN RAPID [Concomitant]
     Active Substance: INSULIN NOS

REACTIONS (3)
  - Blood glucose increased [Unknown]
  - Femur fracture [Unknown]
  - Drug ineffective [Unknown]
